FAERS Safety Report 16463846 (Version 1)
Quarter: 2019Q2

REPORT INFORMATION
  Report Type: Report from Study
  Country: US (occurrence: US)
  Receive Date: 20190621
  Receipt Date: 20190621
  Transmission Date: 20190711
  Serious: Yes (Death, Other)
  Sender: FDA-Public Use
  Company Number: US-PFIZER INC-2019264823

PATIENT
  Age: 71 Year
  Sex: Female

DRUGS (5)
  1. DACARBAZINE. [Suspect]
     Active Substance: DACARBAZINE
     Indication: HODGKIN^S DISEASE
     Dosage: 375 MG/M2, CYCLIC (ALL ADMINISTERED ON DAYS 1 AND 15 OF EACH 28-DAY CYCLE)
     Route: 042
  2. ADRIAMYCIN [Suspect]
     Active Substance: DOXORUBICIN HYDROCHLORIDE
     Indication: HODGKIN^S DISEASE
     Dosage: 25 MG/M2, CYCLIC (ALL ADMINISTERED ON DAYS 1 AND 15 OF EACH 28-DAY CYCLE)
     Route: 042
  3. BRENTUXIMAB VEDOTIN RECOMBINANT [Suspect]
     Active Substance: BRENTUXIMAB VEDOTIN
     Indication: HODGKIN^S DISEASE
     Dosage: 1.2 MG/KG, ON DAYS 1 AND 15 OF INITIAL 28-DAY LEAD-IN CYCLE
     Route: 042
  4. VINBLASTINE [Suspect]
     Active Substance: VINBLASTINE
     Indication: HODGKIN^S DISEASE
     Dosage: 6 MG/M2, CYCLIC (ALL ADMINISTERED ON DAYS 1 AND 15 OF EACH 28-DAY CYCLE)
     Route: 042
  5. BRENTUXIMAB VEDOTIN RECOMBINANT [Suspect]
     Active Substance: BRENTUXIMAB VEDOTIN
     Dosage: 1.2 MG/KG, ON DAYS 1 AND 15 OF EACH 28-DAY CYCLE
     Route: 042

REACTIONS (2)
  - Sepsis [Fatal]
  - Febrile neutropenia [Unknown]
